FAERS Safety Report 7953576-1 (Version None)
Quarter: 2011Q4

REPORT INFORMATION
  Report Type: 
  Country: None (occurrence: None)
  Receive Date: 20111202
  Receipt Date: 20111129
  Transmission Date: 20120403
  Serious: Yes (Other)
  Sender: FDA-Public Use
  Company Number: US-BAYER-2011-114914

PATIENT
  Age: 63 Year
  Sex: Female

DRUGS (3)
  1. NEXAVAR [Suspect]
     Dosage: 200 MG, BID
     Route: 048
     Dates: start: 20110101
  2. NEXAVAR [Suspect]
     Indication: HEPATIC NEOPLASM MALIGNANT
     Dosage: UNK
     Route: 048
     Dates: start: 20111027, end: 20110101
  3. ANTIHYPERTENSIVES [Concomitant]
     Dosage: UNK

REACTIONS (6)
  - APHAGIA [None]
  - DIZZINESS [None]
  - VOMITING [None]
  - DIARRHOEA [None]
  - ABDOMINAL PAIN UPPER [None]
  - DEPRESSION [None]
